FAERS Safety Report 4704430-X (Version None)
Quarter: 2005Q2

REPORT INFORMATION
  Report Type: 
  Country: None (occurrence: None)
  Receive Date: 20050628
  Receipt Date: 20050613
  Transmission Date: 20051028
  Serious: Yes (Death, Other)
  Sender: FDA-Public Use
  Company Number: CAN-2005-0000284

PATIENT
  Age: 49 Year
  Sex: Male

DRUGS (2)
  1. OXYCONTIN [Suspect]
     Indication: PAIN
     Dosage: SEE TEXT, ORAL
     Route: 048
  2. MARIJUANA (CANNABIS) [Suspect]
     Dosage: SEE TEXT,

REACTIONS (5)
  - COMPLETED SUICIDE [None]
  - HEPATITIS B [None]
  - HEPATITIS C [None]
  - INTENTIONAL MISUSE [None]
  - POLYSUBSTANCE ABUSE [None]
